FAERS Safety Report 7568680-X (Version None)
Quarter: 2011Q2

REPORT INFORMATION
  Report Type: 
  Country: None (occurrence: None)
  Receive Date: 20110617
  Receipt Date: 20110602
  Transmission Date: 20111010
  Serious: Yes (Hospitalization)
  Sender: FDA-Public Use
  Company Number: AUR-APL-2011-02522

PATIENT
  Age: 75 Year
  Sex: Male

DRUGS (15)
  1. ZOPICLONE (ZOPICLONE) [Concomitant]
  2. ALLOPURINOL [Concomitant]
  3. PIPERACILLIN AND TAZOBACTAM (PIPERACILLIN, TAZOBACTAM) [Suspect]
     Indication: PNEUMONIA
     Dosage: 13.5 GM (4.5 GM,3 IN 1 D),INTRAVENOUS
     Route: 042
     Dates: start: 20110426, end: 20110503
  4. DIPYRIDAMOLE [Concomitant]
  5. ASPIRIN [Concomitant]
  6. VALPROATE SODIUM [Concomitant]
  7. TRAZODONE HCL [Concomitant]
  8. LACTULOSE SOLUTION (LACTULOSE) [Concomitant]
  9. AMLODIPINE [Concomitant]
  10. OMEPRAZOLE [Concomitant]
  11. ACETAMINOPHEN [Concomitant]
  12. CITALOPRAM HYDROBROMIDE [Concomitant]
  13. NITROGLYCERIN [Concomitant]
  14. SIMVASTATIN [Concomitant]
  15. TAMSULOSIN HCL [Concomitant]

REACTIONS (1)
  - NEUTROPENIA [None]
